FAERS Safety Report 4989238-2 (Version None)
Quarter: 2006Q1

REPORT INFORMATION
  Report Type: 
  Country: None (occurrence: None)
  Receive Date: 20060309
  Receipt Date: 20050502
  Transmission Date: 20060701
  Serious: Yes (Other)
  Sender: FDA-Public Use
  Company Number: 403949

PATIENT
  Age: 20 Year
  Sex: Female

DRUGS (2)
  1. ACCUTANE [Suspect]
     Indication: ACNE
     Dosage: 60 MG DAILY ORAL
     Route: 048
     Dates: start: 19960530, end: 19961129
  2. PREDNISONE TAB [Concomitant]

REACTIONS (15)
  - CHEILITIS [None]
  - DEPRESSION [None]
  - DYSMENORRHOEA [None]
  - EMOTIONAL DISORDER [None]
  - FATIGUE [None]
  - HEADACHE [None]
  - HYPERTENSION [None]
  - HYPOMENORRHOEA [None]
  - IRRITABILITY [None]
  - MENTAL DISORDER [None]
  - MOOD ALTERED [None]
  - PREMATURE LABOUR [None]
  - PREMENSTRUAL SYNDROME [None]
  - SUNBURN [None]
  - VISUAL DISTURBANCE [None]
